FAERS Safety Report 9069605 (Version 1)
Quarter: 2013Q1

REPORT INFORMATION
  Report Type: Spontaneous
  Country: JP (occurrence: JP)
  Receive Date: 20130215
  Receipt Date: 20130215
  Transmission Date: 20140127
  Serious: Yes (Hospitalization)
  Sender: FDA-Public Use
  Company Number: JP-EISAI INC-E2090-02511-SPO-JP

PATIENT
  Age: 43 Year
  Sex: Male

DRUGS (2)
  1. EXCEGRAN [Suspect]
     Indication: EPILEPSY
     Dosage: UNKNOWN
     Route: 048
     Dates: start: 201006, end: 201202
  2. ALEVIATIN [Suspect]
     Indication: EPILEPSY
     Dosage: UNKNOWN
     Dates: start: 201202, end: 201202

REACTIONS (1)
  - Drug reaction with eosinophilia and systemic symptoms [Recovered/Resolved]
